FAERS Safety Report 24233359 (Version 1)
Quarter: 2024Q3

REPORT INFORMATION
  Report Type: Spontaneous
  Country: US (occurrence: US)
  Receive Date: 20240821
  Receipt Date: 20240821
  Transmission Date: 20241017
  Serious: Yes (Hospitalization)
  Sender: SANOFI AVENTIS
  Company Number: US-SA-SAC20240819001241

PATIENT
  Sex: Female
  Weight: 109.7 kg

DRUGS (10)
  1. DUPIXENT [Suspect]
     Active Substance: DUPILUMAB
     Indication: Asthma
     Dosage: 300 MG, QOW
     Route: 058
     Dates: start: 202007
  2. MONTELUKAST [Concomitant]
     Active Substance: MONTELUKAST SODIUM
  3. TRELEGY ELLIPTA [Concomitant]
     Active Substance: FLUTICASONE FUROATE\UMECLIDINIUM BROMIDE\VILANTEROL TRIFENATATE
  4. IBUPROFEN [Concomitant]
     Active Substance: IBUPROFEN
  5. OPZELURA [Concomitant]
     Active Substance: RUXOLITINIB PHOSPHATE
  6. HYDROXYZINE [Concomitant]
     Active Substance: HYDROXYZINE HYDROCHLORIDE
  7. PREMARIN [Concomitant]
     Active Substance: ESTROGENS, CONJUGATED
  8. GABAPENTIN [Concomitant]
     Active Substance: GABAPENTIN
  9. XHANCE [Concomitant]
     Active Substance: FLUTICASONE PROPIONATE
  10. PREDNISONE [Concomitant]
     Active Substance: PREDNISONE

REACTIONS (4)
  - Hospitalisation [Unknown]
  - Hand dermatitis [Unknown]
  - Abdominal distension [Unknown]
  - Inappropriate schedule of product administration [Unknown]
